FAERS Safety Report 8837231 (Version 1)
Quarter: 2012Q4

REPORT INFORMATION
  Report Type: Spontaneous
  Country: US (occurrence: None)
  Receive Date: 20121011
  Receipt Date: 20121011
  Transmission Date: 20130627
  Serious: Yes (Hospitalization)
  Sender: FDA-Public Use
  Company Number: None

PATIENT
  Age: 91 Year
  Sex: Female
  Weight: 65 kg

DRUGS (16)
  1. HUMALOG MIX75/25 [Suspect]
     Dosage: PRIOR TO ADMISSION
10 units/8 units qam/qpm
     Route: 058
  2. ATROVASTATIN [Concomitant]
  3. CYANOCOBALAMIN [Concomitant]
  4. DONEPEZIL [Concomitant]
  5. ESOMOPRAZOLE [Concomitant]
  6. IPRATR [Concomitant]
  7. CHOLECALCIFEROL [Concomitant]
  8. OPIUM NASAL SPRAY [Concomitant]
  9. LISINOPRIL [Concomitant]
  10. METOPROLOL [Concomitant]
  11. SUCRALFATE [Concomitant]
  12. VITAMIN E [Concomitant]
  13. WARFARIN [Concomitant]
  14. ASCORBIC [Concomitant]
  15. NITROGLYCERIN SLOCAPS [Concomitant]
  16. ACETAMINOPHEN [Concomitant]

REACTIONS (4)
  - Atrial fibrillation [None]
  - Mental status changes [None]
  - Lethargy [None]
  - Hypoglycaemia [None]
